FAERS Safety Report 6091494-7 (Version None)
Quarter: 2009Q1

REPORT INFORMATION
  Report Type: 
  Country: None (occurrence: None)
  Receive Date: 20090225
  Receipt Date: 20090213
  Transmission Date: 20090719
  Serious: Yes (Death, Life-Threatening)
  Sender: FDA-Public Use
  Company Number: JP-SANOFI-SYNTHELABO-A01200815764

PATIENT
  Sex: Male

DRUGS (6)
  1. DECADRON [Concomitant]
     Dates: start: 20080723, end: 20080904
  2. AVASTIN [Suspect]
     Indication: COLON CANCER METASTATIC
     Route: 041
     Dates: start: 20080723, end: 20080903
  3. ISOVORIN [Suspect]
     Indication: COLON CANCER METASTATIC
     Dosage: 149 MG
     Route: 041
     Dates: start: 20080723, end: 20080903
  4. FLUOROURACIL [Suspect]
     Indication: COLON CANCER METASTATIC
     Dates: start: 20080723, end: 20080904
  5. KYTRIL [Concomitant]
     Dates: start: 20080723, end: 20080904
  6. ELOXATIN [Suspect]
     Indication: COLON CANCER METASTATIC
     Route: 041
     Dates: start: 20080723, end: 20080903

REACTIONS (3)
  - ACUTE RESPIRATORY DISTRESS SYNDROME [None]
  - DISEASE PROGRESSION [None]
  - HAEMOPTYSIS [None]
